FAERS Safety Report 22660474 (Version 1)
Quarter: 2023Q2

REPORT INFORMATION
  Report Type: Spontaneous
  Country: US (occurrence: US)
  Receive Date: 20230630
  Receipt Date: 20230630
  Transmission Date: 20230721
  Serious: No
  Sender: FDA-Public Use
  Company Number: US-JAZZ PHARMACEUTICALS-2022-US-023708

PATIENT
  Sex: Female
  Weight: 113.4 kg

DRUGS (1)
  1. EPIDIOLEX [Suspect]
     Active Substance: CANNABIDIOL
     Indication: Lennox-Gastaut syndrome
     Dosage: 700 MILLIGRAM EVERY 12 HOURS
     Route: 048
     Dates: start: 20220418

REACTIONS (1)
  - Diarrhoea [Unknown]
